FAERS Safety Report 7756001-9 (Version None)
Quarter: 2011Q3

REPORT INFORMATION
  Report Type: 
  Country: None (occurrence: None)
  Receive Date: 20110916
  Receipt Date: 20110909
  Transmission Date: 20111222
  Serious: Yes (Hospitalization)
  Sender: FDA-Public Use
  Company Number: JP-PFIZER INC-2011172655

PATIENT
  Sex: Male
  Weight: 74 kg

DRUGS (14)
  1. LOXONIN [Concomitant]
     Indication: BACK PAIN
     Dosage: 60 MG, 1-2 X/DAY
     Route: 048
     Dates: start: 20080413, end: 20080727
  2. METHYCOBAL [Concomitant]
     Dosage: UNK
  3. BIPERIDEN HYDROCHLORIDE [Concomitant]
     Indication: PARKINSONISM
     Dosage: 1 MG, 3X/DAY
     Route: 048
     Dates: start: 20000113
  4. PROMAZINE HYDROCHLORIDE [Concomitant]
     Indication: SCHIZOPHRENIA
     Dosage: 75 MG, 1X/DAY
     Route: 048
     Dates: start: 20000113, end: 20110726
  5. QUAZEPAM [Concomitant]
     Indication: INSOMNIA
     Dosage: 30 MG, 1X/DAY
     Route: 048
     Dates: start: 20040412
  6. MIDODRINE HYDROCHLORIDE [Concomitant]
     Indication: HYPOTENSION
     Dosage: 2 MG, 3X/DAY
     Route: 048
     Dates: start: 20000113
  7. HALOPERIDOL [Concomitant]
     Indication: SCHIZOPHRENIA
     Dosage: 3 MG, 3X/DAY
     Route: 048
     Dates: start: 20000113
  8. LYRICA [Suspect]
     Indication: PYODERMA
     Dosage: 75 MG, 2X/DAY
     Route: 048
     Dates: start: 20110722, end: 20110726
  9. BROTIZOLAM [Concomitant]
     Indication: INSOMNIA
     Dosage: 0.5 MG, 1X/DAY
     Route: 048
     Dates: start: 20080302
  10. FLUNITRAZEPAM [Concomitant]
     Indication: INSOMNIA
     Dosage: 2 MG, 1X/DAY
     Route: 048
     Dates: start: 20000113
  11. CETIRIZINE [Concomitant]
     Indication: RHINITIS ALLERGIC
     Dosage: 10 MG, 1X/DAY
     Route: 048
     Dates: start: 20100411
  12. SENNOSIDE A+B [Concomitant]
     Dosage: 24 MG, 1X/DAY
     Route: 048
  13. LOXONIN [Concomitant]
     Indication: MUSCULOSKELETAL PAIN
  14. SODIUM PICOSULFATE [Concomitant]
     Dosage: 5 MG, 1X/DAY
     Route: 048

REACTIONS (1)
  - STEVENS-JOHNSON SYNDROME [None]
